FAERS Safety Report 7827516-X (Version None)
Quarter: 2011Q4

REPORT INFORMATION
  Report Type: 
  Country: None (occurrence: None)
  Receive Date: 20111020
  Receipt Date: 20111010
  Transmission Date: 20120403
  Serious: Yes (Hospitalization)
  Sender: FDA-Public Use
  Company Number: PHHY2011FR89851

PATIENT
  Sex: Female
  Weight: 60 kg

DRUGS (3)
  1. TEGRETOL [Interacting]
     Indication: PARTIAL SEIZURES
     Dosage: 400 MG, BID
     Dates: start: 20090101
  2. KEPPRA [Suspect]
     Indication: PARTIAL SEIZURES
     Dosage: 250 MG, QD
     Dates: start: 20090101
  3. IMPLANON [Interacting]
     Indication: CONTRACEPTION
     Dosage: 25-30 UG DAILY
     Dates: start: 20080724, end: 20110922

REACTIONS (2)
  - MATERNAL EXPOSURE DURING PREGNANCY [None]
  - PREGNANCY WITH IMPLANT CONTRACEPTIVE [None]
